FAERS Safety Report 25969981 (Version 1)
Quarter: 2025Q4

REPORT INFORMATION
  Report Type: Report from Study
  Country: EU (occurrence: EU)
  Receive Date: 20251028
  Receipt Date: 20251028
  Transmission Date: 20260117
  Serious: Yes (Hospitalization, Other)
  Sender: PFIZER
  Company Number: EU-SANDOZ-SDZ2025DE054811

PATIENT
  Sex: Female

DRUGS (15)
  1. METHOTREXATE SODIUM [Suspect]
     Active Substance: METHOTREXATE SODIUM
     Dosage: 7.5 MG, WEEKLY
     Route: 065
     Dates: end: 202408
  2. METHOTREXATE SODIUM [Suspect]
     Active Substance: METHOTREXATE SODIUM
     Dosage: 7.5 MG, WEEKLY
     Route: 065
     Dates: start: 202409
  3. METHOTREXATE SODIUM [Suspect]
     Active Substance: METHOTREXATE SODIUM
     Dosage: 7.5 MG
     Route: 065
  4. SULFASALAZINE [Suspect]
     Active Substance: SULFASALAZINE
     Dosage: SASP 3000
     Route: 065
     Dates: start: 202202, end: 202301
  5. HYRIMOZ [Suspect]
     Active Substance: ADALIMUMAB-ADAZ
     Indication: Rheumatoid arthritis
     Dosage: 40 MG
     Route: 065
     Dates: start: 202202, end: 202301
  6. HYRIMOZ [Suspect]
     Active Substance: ADALIMUMAB-ADAZ
     Dosage: 40 MG
     Route: 065
     Dates: start: 202304, end: 202408
  7. HYRIMOZ [Suspect]
     Active Substance: ADALIMUMAB-ADAZ
     Dosage: FREQ:2 WK;40 MG, Q2W
     Route: 065
     Dates: end: 20240801
  8. HYRIMOZ [Suspect]
     Active Substance: ADALIMUMAB-ADAZ
     Dosage: 40 MG
     Route: 065
     Dates: start: 202409
  9. HYRIMOZ [Suspect]
     Active Substance: ADALIMUMAB-ADAZ
     Dosage: FREQ:2 WK;40 MG, Q2W
     Route: 065
     Dates: start: 20240912
  10. FOLIC ACID [Concomitant]
     Active Substance: FOLIC ACID
     Dosage: 5 MG
     Route: 065
  11. NOVALGIN (METAMIZOLE SODIUM) [Concomitant]
     Active Substance: METAMIZOLE SODIUM
     Dosage: 500 MG (WHEN NECESSARY)
     Route: 065
  12. TORSEMIDE [Concomitant]
     Active Substance: TORSEMIDE
     Dosage: 10 MG
     Route: 065
  13. PANTOPRAZOLE SODIUM [Concomitant]
     Active Substance: PANTOPRAZOLE SODIUM
     Dosage: 40 MG
     Route: 065
  14. METOPROLOL TARTRATE [Concomitant]
     Active Substance: METOPROLOL TARTRATE
     Dosage: 47.5 MG
     Route: 065
  15. RAMIPRIL [Concomitant]
     Active Substance: RAMIPRIL
     Dosage: 5 MG
     Route: 065

REACTIONS (5)
  - Gastrointestinal perforation [Unknown]
  - Arthropathy [Recovered/Resolved]
  - Diverticulitis [Recovered/Resolved]
  - Gastrointestinal ulcer [Unknown]
  - COVID-19 [Recovered/Resolved]

NARRATIVE: CASE EVENT DATE: 20240812
